FAERS Safety Report 5055324-4 (Version None)
Quarter: 2006Q3

REPORT INFORMATION
  Report Type: 
  Country: None (occurrence: None)
  Receive Date: 20060714
  Receipt Date: 20060703
  Transmission Date: 20061208
  Serious: Yes (Life-Threatening)
  Sender: FDA-Public Use
  Company Number: 227107

PATIENT
  Age: 52 Year
  Sex: Male
  Weight: 90 kg

DRUGS (7)
  1. MABTHERA(RITUXIMAB) CONC FOR SOLUTION FOR INFUSION [Suspect]
     Indication: RHEUMATOID ARTHRITIS
     Dosage: 10 MG, INTRAVENOUS
     Route: 042
     Dates: start: 20060411, end: 20060411
  2. CHLORPHENIRAMINE MALEATE [Concomitant]
  3. DIHYDROCODEINE (DIHYDROCODEINE BITARTRATE) [Concomitant]
  4. HYDROCORTISONE TAB [Concomitant]
  5. OMEPRAZOLE [Concomitant]
  6. ACETAMINOPHEN [Concomitant]
  7. XENICAL [Concomitant]

REACTIONS (1)
  - ANAPHYLACTIC REACTION [None]
